FAERS Safety Report 5839262-2 (Version None)
Quarter: 2008Q3

REPORT INFORMATION
  Report Type: 
  Country: None (occurrence: None)
  Receive Date: 20080808
  Receipt Date: 20080728
  Transmission Date: 20090109
  Serious: Yes (Other)
  Sender: FDA-Public Use
  Company Number: GB-PFIZER INC-2008063318

PATIENT
  Age: 36 Year
  Sex: Female
  Weight: 100 kg

DRUGS (5)
  1. CHANTIX [Suspect]
     Indication: SMOKING CESSATION THERAPY
     Route: 048
     Dates: start: 20080628, end: 20080705
  2. PREDNISOLONE [Concomitant]
     Route: 048
     Dates: start: 20080620, end: 20080625
  3. ALBUTEROL [Concomitant]
     Route: 055
  4. SERETIDE [Concomitant]
     Route: 055
  5. CETIRIZINE HCL [Concomitant]
     Route: 048

REACTIONS (2)
  - SUICIDAL IDEATION [None]
  - TEARFULNESS [None]
